FAERS Safety Report 10248119 (Version 3)
Quarter: 2016Q4

REPORT INFORMATION
  Report Type: Spontaneous
  Country: CA (occurrence: CA)
  Receive Date: 20140619
  Receipt Date: 20161220
  Transmission Date: 20170206
  Serious: Yes (Hospitalization, Other)
  Sender: FDA-Public Use
  Company Number: CA-MERCK-1406CAN005905

PATIENT
  Age: 82 Year
  Sex: Female

DRUGS (2)
  1. EZETROL [Suspect]
     Active Substance: EZETIMIBE
     Indication: HYPERLIPIDAEMIA
     Dosage: 10 MG, DAILY
     Route: 048
     Dates: start: 200712, end: 201612
  2. EZETROL [Suspect]
     Active Substance: EZETIMIBE
     Indication: DIABETES MELLITUS

REACTIONS (4)
  - Macular degeneration [Unknown]
  - Hip fracture [Recovering/Resolving]
  - Spinal fracture [Unknown]
  - Malaise [Unknown]

NARRATIVE: CASE EVENT DATE: 201403
